FAERS Safety Report 23653466 (Version 1)
Quarter: 2024Q1

REPORT INFORMATION
  Report Type: Spontaneous
  Country: CN (occurrence: CN)
  Receive Date: 20240320
  Receipt Date: 20240320
  Transmission Date: 20240410
  Serious: Yes (Other)
  Sender: FDA-Public Use
  Company Number: CN-FreseniusKabi-FK202404156

PATIENT
  Age: 84 Year
  Sex: Male
  Weight: 72 kg

DRUGS (18)
  1. SMOFLIPID [Suspect]
     Active Substance: FISH OIL\MEDIUM-CHAIN TRIGLYCERIDES\OLIVE OIL\SOYBEAN OIL
     Indication: Urinary retention
     Dosage: FORM OF ADMIN: INJECTION
     Route: 041
     Dates: start: 20240302, end: 20240303
  2. SMOFLIPID [Suspect]
     Active Substance: FISH OIL\MEDIUM-CHAIN TRIGLYCERIDES\OLIVE OIL\SOYBEAN OIL
     Indication: Nutritional supplementation
  3. DEXTROSE [Suspect]
     Active Substance: DEXTROSE\DEXTROSE MONOHYDRATE
     Indication: Urinary retention
     Dosage: FORM OF ADMIN: INJECTION
     Route: 041
     Dates: start: 20240302, end: 20240303
  4. DEXTROSE [Suspect]
     Active Substance: DEXTROSE\DEXTROSE MONOHYDRATE
     Indication: Nutritional supplementation
  5. ELECTROLYTES NOS\MINERALS\SORBITOL [Suspect]
     Active Substance: ELECTROLYTES NOS\MINERALS\SORBITOL
     Indication: Urinary retention
     Dosage: FORM OF ADMIN: INJECTION
     Route: 041
     Dates: start: 20240302, end: 20240303
  6. ELECTROLYTES NOS\MINERALS\SORBITOL [Suspect]
     Active Substance: ELECTROLYTES NOS\MINERALS\SORBITOL
     Indication: Nutritional supplementation
  7. ERGOCALCIFEROL\PHYTONADIONE\RETINOL\TOCOPHEROL [Suspect]
     Active Substance: ERGOCALCIFEROL\PHYTONADIONE\RETINOL\TOCOPHEROL
     Indication: Urinary retention
     Dosage: FORM OF ADMIN: INJECTION
     Route: 041
     Dates: start: 20240302, end: 20240303
  8. ERGOCALCIFEROL\PHYTONADIONE\RETINOL\TOCOPHEROL [Suspect]
     Active Substance: ERGOCALCIFEROL\PHYTONADIONE\RETINOL\TOCOPHEROL
     Indication: Nutritional supplementation
  9. POTASSIUM CHLORIDE [Suspect]
     Active Substance: POTASSIUM CHLORIDE
     Indication: Urinary retention
     Dosage: DOSAGE FORM: INJECTION?ROA: INTRAVENOUS DRIP
     Dates: start: 20240302, end: 20240303
  10. POTASSIUM CHLORIDE [Suspect]
     Active Substance: POTASSIUM CHLORIDE
     Indication: Nutritional supplementation
  11. INSULIN HUMAN [Suspect]
     Active Substance: INSULIN HUMAN
     Indication: Urinary retention
     Dosage: DOSE: 40 U?DOSAGE FORM: INJECTION?ROA: INTRAVENOUS DRIP
     Dates: start: 20240302, end: 20240303
  12. INSULIN HUMAN [Suspect]
     Active Substance: INSULIN HUMAN
     Indication: Nutritional supplementation
  13. AMINO ACIDS, SOURCE UNSPECIFIED [Suspect]
     Active Substance: AMINO ACIDS, SOURCE UNSPECIFIED
     Indication: Urinary retention
     Dosage: DOSAGE FORM: INJECTION?ROA: INTRAVENOUS DRIP
     Dates: start: 20240302, end: 20240303
  14. AMINO ACIDS, SOURCE UNSPECIFIED [Suspect]
     Active Substance: AMINO ACIDS, SOURCE UNSPECIFIED
     Indication: Nutritional supplementation
  15. VITAMINS [Suspect]
     Active Substance: VITAMINS
     Indication: Urinary retention
     Dosage: DOSAGE FORM: INJECTION?ROA: INTRAVENOUS DRIP
     Dates: start: 20240302, end: 20240303
  16. VITAMINS [Suspect]
     Active Substance: VITAMINS
     Indication: Nutritional supplementation
  17. DEXTROSE [Suspect]
     Active Substance: DEXTROSE\DEXTROSE MONOHYDRATE
     Indication: Urinary retention
     Dosage: DOSAGE FORM: INJECTION?ROA: INTRAVENOUS DRIP
     Dates: start: 20240302, end: 20240303
  18. DEXTROSE [Suspect]
     Active Substance: DEXTROSE\DEXTROSE MONOHYDRATE
     Indication: Nutritional supplementation

REACTIONS (3)
  - Chest discomfort [Recovering/Resolving]
  - Tachypnoea [Recovering/Resolving]
  - Atrial fibrillation [Recovering/Resolving]

NARRATIVE: CASE EVENT DATE: 20240303
